FAERS Safety Report 22905944 (Version 2)
Quarter: 2023Q4

REPORT INFORMATION
  Report Type: Spontaneous
  Country: US (occurrence: US)
  Receive Date: 20230905
  Receipt Date: 20231026
  Transmission Date: 20240110
  Serious: No
  Sender: FDA-Public Use
  Company Number: US-MICRO LABS LIMITED-ML2023-05035

PATIENT
  Age: 65 Year
  Sex: Female
  Weight: 72.64 kg

DRUGS (1)
  1. TRAVOPROST [Suspect]
     Active Substance: TRAVOPROST
     Indication: Glaucoma
     Dosage: ONCE A DAY AT NIGHT BEFORE BED.
     Route: 047
     Dates: start: 20230825

REACTIONS (3)
  - Eye swelling [Not Recovered/Not Resolved]
  - Product dose omission issue [Unknown]
  - Product container issue [Unknown]

NARRATIVE: CASE EVENT DATE: 20230826
